FAERS Safety Report 4901102-3 (Version None)
Quarter: 2006Q1

REPORT INFORMATION
  Report Type: 
  Country: None (occurrence: None)
  Receive Date: 20060113
  Receipt Date: 20051004
  Transmission Date: 20060701
  Serious: No
  Sender: FDA-Public Use
  Company Number: 2005SP000696

PATIENT
  Age: 55 Year
  Sex: Male
  Weight: 68.0396 kg

DRUGS (5)
  1. LUNESTA [Suspect]
     Indication: INSOMNIA
     Dosage: SEE IMAGE
     Dates: start: 20050509, end: 20050501
  2. LUNESTA [Suspect]
     Indication: INSOMNIA
     Dosage: SEE IMAGE
     Dates: start: 20050501
  3. LEXAPRO [Concomitant]
  4. PRAMIPEXOLE DIHYDROCHLORIDE [Concomitant]
  5. DIHYDROCHLORIDE [Concomitant]

REACTIONS (2)
  - HEADACHE [None]
  - INSOMNIA [None]
